FAERS Safety Report 17443711 (Version 1)
Quarter: 2020Q1

REPORT INFORMATION
  Report Type: Spontaneous
  Country: US (occurrence: US)
  Receive Date: 20200206
  Receipt Date: 20200206
  Transmission Date: 20200409
  Serious: Yes (Hospitalization)
  Sender: FDA-Public Use
  Company Number: None

PATIENT
  Age: 70 Year
  Sex: Male

DRUGS (13)
  1. POT CITRATE [Concomitant]
     Active Substance: POTASSIUM CITRATE
  2. PRAVASATIN [Concomitant]
  3. CARVEDILOL. [Concomitant]
     Active Substance: CARVEDILOL
  4. CARVEDILOL. [Concomitant]
     Active Substance: CARVEDILOL
  5. TACROLIMUS 1MG CAP [Suspect]
     Active Substance: TACROLIMUS
     Indication: RENAL TRANSPLANT
     Dosage: ?          OTHER FREQUENCY:QAM ;?
     Route: 048
  6. AMOXICILLIN. [Concomitant]
     Active Substance: AMOXICILLIN
  7. MYCOPHENOLIC [Concomitant]
     Active Substance: MYCOPHENOLIC ACID
  8. POT CITRATE [Concomitant]
     Active Substance: POTASSIUM CITRATE
  9. MYCOPHENOLIC [Concomitant]
     Active Substance: MYCOPHENOLIC ACID
  10. PREDNISONE. [Suspect]
     Active Substance: PREDNISONE
  11. PRAVASATIN [Concomitant]
  12. TACROLIMUS 0.5MG CAP [Suspect]
     Active Substance: TACROLIMUS
     Indication: RENAL TRANSPLANT
     Dosage: ?          OTHER FREQUENCY:QPM;?
     Route: 048
     Dates: start: 20190517
  13. AMOXICILLIN. [Concomitant]
     Active Substance: AMOXICILLIN

REACTIONS (1)
  - Hospitalisation [None]

NARRATIVE: CASE EVENT DATE: 20200120
